FAERS Safety Report 6976344-6 (Version None)
Quarter: 2010Q3

REPORT INFORMATION
  Report Type: 
  Country: None (occurrence: None)
  Receive Date: 20100910
  Receipt Date: 20090416
  Transmission Date: 20110219
  Serious: No
  Sender: FDA-Public Use
  Company Number: US-WYE-H08998509

PATIENT
  Age: 87 Year
  Sex: Male

DRUGS (8)
  1. PROTONIX [Suspect]
     Indication: TRACHEOSTOMY
     Route: 048
     Dates: start: 20090403
  2. LISINOPRIL [Concomitant]
  3. IRON [Concomitant]
  4. ACETYLSALICYLIC ACID [Concomitant]
  5. TIZANIDINE HCL [Concomitant]
  6. MAGNESIUM [Concomitant]
  7. PAXIL [Concomitant]
  8. CHOLESTYRAMINE [Concomitant]

REACTIONS (1)
  - DIARRHOEA [None]
